FAERS Safety Report 21845781 (Version 1)
Quarter: 2023Q1

REPORT INFORMATION
  Report Type: Report from Study
  Country: CA (occurrence: CA)
  Receive Date: 20230111
  Receipt Date: 20230111
  Transmission Date: 20230418
  Serious: Yes (Other)
  Sender: FDA-Public Use
  Company Number: CA-TEVA-2022-CA-2838952

PATIENT
  Age: 28 Year
  Sex: Female

DRUGS (1)
  1. AJOVY [Suspect]
     Active Substance: FREMANEZUMAB-VFRM
     Indication: Migraine prophylaxis
     Dosage: LAST DOSE ADMINISTERED DATE 16-DEC-2022
     Route: 058
     Dates: start: 20221216

REACTIONS (4)
  - Systemic lupus erythematosus [Unknown]
  - Injection site erythema [Not Recovered/Not Resolved]
  - Injection site hypersensitivity [Unknown]
  - Feeling abnormal [Unknown]

NARRATIVE: CASE EVENT DATE: 20220101
